FAERS Safety Report 11611278 (Version 2)
Quarter: 2015Q4

REPORT INFORMATION
  Report Type: Spontaneous
  Country: US (occurrence: US)
  Receive Date: 20151008
  Receipt Date: 20151125
  Transmission Date: 20160304
  Serious: Yes (Hospitalization, Other)
  Sender: FDA-Public Use
  Company Number: US-PFIZER INC-2015327775

PATIENT
  Age: 59 Year
  Sex: Male
  Weight: 136 kg

DRUGS (13)
  1. METFORMIN [Concomitant]
     Active Substance: METFORMIN HYDROCHLORIDE
     Dosage: 500 MG, 1X/DAY
     Route: 048
  2. METOPROLOL SUCCINATE. [Concomitant]
     Active Substance: METOPROLOL SUCCINATE
     Dosage: 25 MG, 1X/DAY(EXTENDED RELEASE 24 HR)
     Route: 048
     Dates: start: 20121020
  3. TORISEL [Suspect]
     Active Substance: TEMSIROLIMUS
     Indication: RENAL CANCER STAGE IV
     Dosage: 25 MG, UNK
     Route: 042
     Dates: start: 20141030, end: 20151025
  4. FENOFIBRATE. [Concomitant]
     Active Substance: FENOFIBRATE
     Dosage: 160 MG, 1X/DAY
     Route: 048
  5. COUMADIN [Concomitant]
     Active Substance: WARFARIN SODIUM
     Dosage: 5 MG, 1X/DAY
     Route: 048
     Dates: start: 20140904
  6. OXYCONTIN [Concomitant]
     Active Substance: OXYCODONE HYDROCHLORIDE
     Dosage: 40 MG, 3X/DAY X 30 DAYS
     Route: 048
     Dates: start: 20121119
  7. EMLA [Concomitant]
     Active Substance: LIDOCAINE\PRILOCAINE
     Dosage: UNK(A SMALL AMOUNT AS DIRECTED, APPLY TO PORT- A- CATH AREA ONE HOUR PRIOR TO USE)
     Dates: start: 20141113
  8. LEXAPRO [Concomitant]
     Active Substance: ESCITALOPRAM OXALATE
     Dosage: 10 MG, 1X/DAY
  9. ALPRAZOLAM. [Concomitant]
     Active Substance: ALPRAZOLAM
     Dosage: 1 MG, AS NEEDED(THREE TIMES A DAY)
     Route: 048
  10. BENADRYL [Concomitant]
     Active Substance: DIPHENHYDRAMINE HYDROCHLORIDE
     Indication: PREMEDICATION
     Dosage: 25 MG, WEEKLY
     Dates: start: 20141113
  11. DILAUDID [Concomitant]
     Active Substance: HYDROMORPHONE HYDROCHLORIDE
     Indication: PAIN
     Dosage: 8 MG, AS NEEDED(1 TABLET BY MOUTH EVERY FOUR HOURS)
     Route: 048
     Dates: start: 20141020
  12. ALPRAZOLAM. [Concomitant]
     Active Substance: ALPRAZOLAM
     Dosage: 0.5 MG, 2X/DAY
     Route: 048
     Dates: start: 20121123
  13. TRAZODONE [Concomitant]
     Active Substance: TRAZODONE HYDROCHLORIDE
     Dosage: 50MG, 1X/DAY (100 MG TABLET, 1/2 TABLET BY MOUTH EVERY NIGHT)
     Route: 048
     Dates: start: 20111025

REACTIONS (18)
  - Deep vein thrombosis [Unknown]
  - Anxiety [Unknown]
  - Malaise [Unknown]
  - Dyspnoea exertional [Unknown]
  - Penile oedema [Unknown]
  - Renal cancer stage IV [Unknown]
  - Spinal pain [Unknown]
  - Pelvic pain [Unknown]
  - Oedema peripheral [Unknown]
  - Disease progression [Unknown]
  - Chest pain [Unknown]
  - Arthralgia [Unknown]
  - Depression [Unknown]
  - Pain [Unknown]
  - Fatigue [Unknown]
  - Muscle spasms [Unknown]
  - Tenderness [Unknown]
  - Testicular oedema [Unknown]

NARRATIVE: CASE EVENT DATE: 2015
